FAERS Safety Report 5270912-8 (Version None)
Quarter: 2007Q1

REPORT INFORMATION
  Report Type: 
  Country: None (occurrence: None)
  Receive Date: 20070309
  Receipt Date: 20070227
  Transmission Date: 20070707
  Serious: Yes (Hospitalization)
  Sender: FDA-Public Use
  Company Number: THYM-11338

PATIENT
  Age: 42 Year
  Sex: Male

DRUGS (10)
  1. THYMOGLOBULIN [Suspect]
     Indication: RENAL TRANSPLANT
     Dosage: 1 MG/KG QOD IV
     Route: 042
  2. MYCOPHENOLATE MOFETIL [Concomitant]
  3. PREDNISONE [Concomitant]
  4. TACROLIMUS [Concomitant]
  5. BACRIM [Concomitant]
  6. VALGANCICLOVIR HCL [Concomitant]
  7. MYCELEX LOZENGES [Concomitant]
  8. PROTON PUMP INHIBITOR (UNSPECIFIED) [Concomitant]
  9. ATENOLOL [Concomitant]
  10. GLIPIZIDE [Concomitant]

REACTIONS (2)
  - NO THERAPEUTIC RESPONSE [None]
  - SERUM SICKNESS [None]
